FAERS Safety Report 9409534 (Version 2)
Quarter: 2013Q2

REPORT INFORMATION
  Report Type: Spontaneous
  Country: US (occurrence: US)
  Receive Date: 20130424
  Receipt Date: 20130515
  Transmission Date: 20140414
  Serious: Yes (Other)
  Sender: FDA-Public Use
  Company Number: 2013P1004827

PATIENT
  Age: 64 Year
  Sex: Female

DRUGS (3)
  1. INFUMORPH [Suspect]
     Indication: SPINAL PAIN
  2. INFUMORPH [Suspect]
     Indication: BACK PAIN
  3. INFUMORPH [Suspect]
     Indication: CANCER PAIN

REACTIONS (2)
  - Meningitis [None]
  - Implant site infection [None]
